FAERS Safety Report 6893189-6 (Version None)
Quarter: 2010Q3

REPORT INFORMATION
  Report Type: 
  Country: None (occurrence: None)
  Receive Date: 20100731
  Receipt Date: 20090622
  Transmission Date: 20110219
  Serious: No
  Sender: FDA-Public Use
  Company Number: US-PFIZER INC-2009215646

PATIENT
  Sex: Female
  Weight: 73.469 kg

DRUGS (3)
  1. NORVASC [Suspect]
     Indication: HYPERTENSION
     Dosage: 5 MG, 1X/DAY
     Route: 048
     Dates: start: 20080901
  2. WELLBUTRIN [Concomitant]
     Dosage: 300 MG, UNK
     Dates: start: 20080821
  3. ZYRTEC [Concomitant]
     Dosage: UNK, INTERMITTENT

REACTIONS (1)
  - NOCTURIA [None]
